FAERS Safety Report 6497716-2 (Version None)
Quarter: 2009Q4

REPORT INFORMATION
  Report Type: 
  Country: None (occurrence: None)
  Receive Date: 20091215
  Receipt Date: 20091204
  Transmission Date: 20100525
  Serious: Yes (Life-Threatening, Hospitalization, Other)
  Sender: FDA-Public Use
  Company Number: FR-BAXTER-2009BH018886

PATIENT
  Age: 40 Year
  Sex: Female

DRUGS (5)
  1. ENDOXAN BAXTER [Suspect]
     Indication: BONE MARROW CONDITIONING REGIMEN
     Route: 042
     Dates: start: 20090905, end: 20090906
  2. DAUNORUBICIN HCL [Suspect]
     Indication: ACUTE MYELOID LEUKAEMIA
     Route: 042
     Dates: start: 20090727, end: 20090728
  3. DAUNORUBICIN HCL [Suspect]
     Route: 042
     Dates: start: 20090601, end: 20090601
  4. FLUDARABINE [Suspect]
     Indication: BONE MARROW CONDITIONING REGIMEN
     Route: 065
     Dates: start: 20090905, end: 20090906
  5. BUSILVEX [Suspect]
     Indication: BONE MARROW CONDITIONING REGIMEN
     Route: 065
     Dates: start: 20090905, end: 20090906

REACTIONS (3)
  - BACTERIAL PYELONEPHRITIS [None]
  - CARDIOMYOPATHY [None]
  - SEPTIC SHOCK [None]
